FAERS Safety Report 9644655 (Version 1)
Quarter: 2013Q4

REPORT INFORMATION
  Report Type: Spontaneous
  Country: US (occurrence: US)
  Receive Date: 20131025
  Receipt Date: 20131025
  Transmission Date: 20140711
  Serious: Yes (Other)
  Sender: FDA-Public Use
  Company Number: US-JNJFOC-20131010021

PATIENT
  Age: 91 Year
  Sex: Female
  Weight: 68.04 kg

DRUGS (2)
  1. LEVOFLOXACIN [Suspect]
     Indication: RESPIRATORY DISORDER
     Dosage: FOR 7 DAYS
     Route: 048
     Dates: start: 20131001, end: 20131007
  2. WARFARIN [Suspect]
     Indication: ANTICOAGULANT THERAPY
     Route: 048

REACTIONS (6)
  - International normalised ratio increased [Unknown]
  - Hallucination, visual [Not Recovered/Not Resolved]
  - Tinnitus [Not Recovered/Not Resolved]
  - Incoherent [Not Recovered/Not Resolved]
  - Chromaturia [Not Recovered/Not Resolved]
  - Fluid intake reduced [Not Recovered/Not Resolved]
